FAERS Safety Report 11531179 (Version 1)
Quarter: 2015Q3

REPORT INFORMATION
  Report Type: Spontaneous
  Country: US (occurrence: US)
  Receive Date: 20150903
  Receipt Date: 20150903
  Transmission Date: 20151125
  Serious: No
  Sender: FDA-Public Use
  Company Number: US-ELI_LILLY_AND_COMPANY-US201304007925

PATIENT
  Age: 66 Year
  Sex: Female

DRUGS (6)
  1. CYMBALTA [Suspect]
     Active Substance: DULOXETINE HYDROCHLORIDE
     Dosage: 60 MG, OTHER (EVERY THIRD DAY)
     Route: 065
     Dates: end: 20130413
  2. CYMBALTA [Suspect]
     Active Substance: DULOXETINE HYDROCHLORIDE
     Indication: FIBROMYALGIA
     Dosage: 60 MG, QD
     Route: 065
     Dates: start: 201207
  3. DEXLANSOPRAZOLE [Concomitant]
     Active Substance: DEXLANSOPRAZOLE
     Indication: GASTROOESOPHAGEAL REFLUX DISEASE
     Dosage: UNK, UNKNOWN
     Route: 065
  4. CYMBALTA [Suspect]
     Active Substance: DULOXETINE HYDROCHLORIDE
     Dosage: 60 MG, QOD
     Route: 065
     Dates: start: 20130313
  5. ZOLOFT [Concomitant]
     Active Substance: SERTRALINE HYDROCHLORIDE
     Dosage: UNK, UNKNOWN
     Route: 065
  6. CYMBALTA [Suspect]
     Active Substance: DULOXETINE HYDROCHLORIDE
     Dosage: 60 MG, QD
     Route: 065
     Dates: start: 20130420

REACTIONS (10)
  - Nocturnal fear [Unknown]
  - Depression [Unknown]
  - Headache [Unknown]
  - Vomiting [Unknown]
  - Feeling abnormal [Unknown]
  - Fibromyalgia [Unknown]
  - Arthralgia [Unknown]
  - Obsessive-compulsive disorder [Unknown]
  - Drug withdrawal syndrome [Unknown]
  - Paraesthesia [Unknown]

NARRATIVE: CASE EVENT DATE: 201304
